FAERS Safety Report 19489972 (Version 8)
Quarter: 2021Q3

REPORT INFORMATION
  Report Type: Report from Study
  Country: GB (occurrence: GB)
  Receive Date: 20210704
  Receipt Date: 20210930
  Transmission Date: 20211014
  Serious: Yes (Hospitalization, Other)
  Sender: FDA-Public Use
  Company Number: GB-CELLTRION INC.-2021GB008776

PATIENT

DRUGS (81)
  1. TRASTUZUMAB. [Suspect]
     Active Substance: TRASTUZUMAB
     Indication: BREAST CANCER METASTATIC
     Dosage: 336 MG, EVERY 3 WEEK, DOSE FORM: 230, (CUMULATIVE DOSE TO FIRST REACTION:14383.333 MG); DOSAGE FORM:
     Route: 042
     Dates: start: 20180518, end: 20190427
  2. TRASTUZUMAB. [Suspect]
     Active Substance: TRASTUZUMAB
     Dosage: 336 MG, EVERY 3 WEEK, DOSE FORM: 230, (CUMULATIVE DOSE TO FIRST REACTION:14383.333 MG)
     Route: 042
     Dates: start: 20180518, end: 20190427
  3. TRASTUZUMAB. [Suspect]
     Active Substance: TRASTUZUMAB
     Dosage: 336 MG, EVERY 3 WEEK, DOSE FORM: 230, (CUMULATIVE DOSE TO FIRST REACTION:14383.333 MG)
     Route: 042
     Dates: start: 20180518, end: 20190427
  4. TRASTUZUMAB. [Suspect]
     Active Substance: TRASTUZUMAB
     Dosage: 450 MG, EVERY 3 WEEK (LOADING DOSE; DOSE FORM: 293)
     Route: 042
     Dates: start: 20151105, end: 20151105
  5. DOCETAXEL. [Suspect]
     Active Substance: DOCETAXEL
     Indication: BREAST CANCER METASTATIC
     Dosage: 124 MG, EVERY 3 WEEK (CUMULATIVE DOSE: 159.42857 MG)
     Route: 042
     Dates: start: 20151106, end: 20151106
  6. PACLITAXEL. [Suspect]
     Active Substance: PACLITAXEL
     Dosage: 120 MG, EVERY 4 WEEKS (34.75 MG CD, 884 MG, 4.92857142 MG; CUMULATIVE DOSE: 229.5 MG)
     Route: 042
     Dates: start: 20160204
  7. PACLITAXEL. [Suspect]
     Active Substance: PACLITAXEL
     Dosage: 102 MG, EVERY 4 WEEKS
     Route: 042
     Dates: start: 20160204, end: 20160218
  8. PACLITAXEL LIPOSOME [Suspect]
     Active Substance: PACLITAXEL
     Dosage: 102 MG, EVERY 4 WEEKS (CUMULATIVED DOSE: 229.5 MG)
     Route: 042
     Dates: start: 20160204, end: 20160218
  9. PACLITAXEL LIPOSOME [Suspect]
     Active Substance: PACLITAXEL
     Dosage: 138 MG EVERY 4 WEEKS (CUMULATIVE DOSE: 229.5 MG)
     Route: 042
     Dates: start: 20151203, end: 20160203
  10. EZETIMIBE. [Concomitant]
     Active Substance: EZETIMIBE
     Dosage: UNK (DOSE FORM:245)
     Route: 048
     Dates: start: 2019
  11. ROSUVASTATIN CALCIUM. [Concomitant]
     Active Substance: ROSUVASTATIN CALCIUM
     Dosage: 5 MG
     Route: 048
     Dates: start: 201806, end: 201911
  12. TRIMETHOPRIM. [Concomitant]
     Active Substance: TRIMETHOPRIM
     Indication: URINARY TRACT INFECTION
     Dosage: 400 MG EVERY 1 DAY (CUMULATIVE DOSE TO FIRST REACTION: 3600.0 MG, 245 DOSE FORM)
     Route: 048
     Dates: start: 20151210
  13. TRIMETHOPRIM. [Concomitant]
     Active Substance: TRIMETHOPRIM
     Dosage: 200 MG, EVERY 1 DAY (DOSE FORM: 245)
     Route: 048
     Dates: start: 20151210
  14. PERTUZUMAB. [Suspect]
     Active Substance: PERTUZUMAB
     Dosage: 420 MG, EVERY 3 WEEKS (MAINTENANCE DOSE, LOADING DOSE, INFUSION, SOLUTION; DOSE FORM: 293; CUMULATIV
     Route: 042
     Dates: start: 20151203
  15. PERTUZUMAB. [Suspect]
     Active Substance: PERTUZUMAB
     Dosage: 840 MG, 1 TOTAL (LOADING DOSE; DOSE FORM: 230)
     Route: 042
     Dates: start: 20151105, end: 20151105
  16. PACLITAXEL. [Suspect]
     Active Substance: PACLITAXEL
     Dosage: 138 MG, EVERY 4 WEEKS (CUMULATIVE DOSE: 9.857142 MG)
     Route: 042
     Dates: start: 20151203, end: 20160203
  17. PACLITAXEL. [Suspect]
     Active Substance: PACLITAXEL
     Indication: BREAST CANCER METASTATIC
     Dosage: 102 MG, EVERY 4 WEEKS
     Route: 042
     Dates: start: 20151203, end: 20160203
  18. RAMIPRIL. [Concomitant]
     Active Substance: RAMIPRIL
     Dosage: 2.5 MG, EVERY 1 DAY (DOSE FORM: 245)(CUMULATIVE DOSE TO FIRST REACTION: 1347.3959 MG)
     Route: 048
     Dates: start: 20170523
  19. PERTUZUMAB. [Suspect]
     Active Substance: PERTUZUMAB
     Dosage: 840 MG, TOTAL (LOADING DOSE, INFUSION, SOLUTION; DOSE FORM: 23)
     Route: 042
     Dates: start: 20151105, end: 20151105
  20. PACLITAXEL. [Suspect]
     Active Substance: PACLITAXEL
     Dosage: 138 MG, EVERY 4 WEEKS (CUMULATIVE DOSE: 9.857142 MG)
     Route: 042
     Dates: start: 20151203, end: 20160203
  21. PACLITAXEL. [Suspect]
     Active Substance: PACLITAXEL
     Dosage: 139 MG, EVERY 4 WEEKS (CUMULATIVE DOSE: 44.67857 MG)
     Route: 042
     Dates: start: 20151210
  22. PACLITAXEL. [Suspect]
     Active Substance: PACLITAXEL
     Dosage: 68 MG, WEEKLY
     Route: 042
     Dates: start: 20160303, end: 20160310
  23. PACLITAXEL. [Suspect]
     Active Substance: PACLITAXEL
     Dosage: 139 MG, EVERY 4 WEEKS
     Route: 042
     Dates: start: 20151210
  24. PACLITAXEL LIPOSOME [Suspect]
     Active Substance: PACLITAXEL
     Dosage: 120 MG, EVERY 4 WEEKS (34.75 MG CD, 884 MG, 4.92857142 MG; CUMULATIVE DOSE: 229.5 MG)
     Route: 042
     Dates: start: 20160204
  25. CHLORHEXIDINE GLUCONATE. [Concomitant]
     Active Substance: CHLORHEXIDINE GLUCONATE
     Dosage: EVERY 0.25 DAY (MOUTHWASH)
     Route: 048
     Dates: start: 20151105
  26. CLOPIDOGREL [Concomitant]
     Active Substance: CLOPIDOGREL BISULFATE
     Dosage: DOSE FORM: 245
     Route: 048
     Dates: start: 20170701
  27. LOPERAMIDE [Concomitant]
     Active Substance: LOPERAMIDE
     Indication: PROPHYLAXIS
     Dosage: 2 MG (4 TABLET TWICE A DAY FOR 3 DAYS; DOSE FORM: 245)
     Route: 048
     Dates: start: 20151203
  28. RAMIPRIL. [Concomitant]
     Active Substance: RAMIPRIL
     Dosage: 1.25 MG, EVERY 1 DAY (DOSE FORM: 245)
     Route: 048
     Dates: start: 20170523
  29. CHLORHEXIDINE GLUCONATE. [Concomitant]
     Active Substance: CHLORHEXIDINE GLUCONATE
     Indication: PROPHYLAXIS
     Dosage: 4 EVERY 1 DAY (MOUTHWASH)
     Route: 048
     Dates: start: 20151105
  30. TRASTUZUMAB. [Suspect]
     Active Substance: TRASTUZUMAB
     Dosage: 450 MG 1 TOTAL (LOADING DOSE) DOSE FORM:230; DOSGE FORM: INFUSION, SOLUTION
     Route: 041
     Dates: start: 20151105, end: 20151105
  31. TRASTUZUMAB. [Suspect]
     Active Substance: TRASTUZUMAB
     Dosage: 450 MG 1 TOTAL (LOADING DOSE) DOSE FORM:230
     Route: 041
     Dates: start: 20151105, end: 20151105
  32. TRASTUZUMAB. [Suspect]
     Active Substance: TRASTUZUMAB
     Dosage: 350 MG, EVERY 3 WEEK (MAINTENANCE DOSE; DOSE FORM: 230; CUMULATIVE DOSE: 33.333332 MG)
     Route: 042
     Dates: start: 20151203, end: 20180427
  33. PACLITAXEL. [Suspect]
     Active Substance: PACLITAXEL
     Dosage: 68 MG, EVERY 1 WEEKS (DATE OF LAST ADMINISTERED DOSE: 10?MAR?2016; CUMULATIVE DOSE: 903.4286  MG)
     Route: 042
     Dates: start: 20160303, end: 20160310
  34. PACLITAXEL. [Suspect]
     Active Substance: PACLITAXEL
     Indication: BREAST CANCER METASTATIC
     Dosage: 139 MG, EVERY 4 WEEKS
     Route: 042
     Dates: start: 20151210
  35. HERCEPTIN [Suspect]
     Active Substance: TRASTUZUMAB
     Dosage: 450 MG, TOTAL (LOADING DOSE, 16.6 MG, MAINTENANCE DOSE; DOSE FORM: 230)
     Route: 041
     Dates: start: 20151105, end: 20151105
  36. ASPIRIN. [Concomitant]
     Active Substance: ASPIRIN
     Dosage: 75 MG EVERY 1 DAY (CUMULATIVE DOSE TO FIRST REACTION: 40421.875 MG, 245 DOSE FORM)
     Route: 048
     Dates: start: 20170523, end: 20170701
  37. CHLORHEXIDINE GLUCONATE. [Concomitant]
     Active Substance: CHLORHEXIDINE GLUCONATE
     Indication: PROPHYLAXIS
     Dosage: 4(NO UNIT REPORTED) EVERY 1 DAY (MOUTHWASH)
     Route: 048
     Dates: start: 20151105
  38. METOCLOPRAMIDE. [Concomitant]
     Active Substance: METOCLOPRAMIDE
     Indication: PROPHYLAXIS
     Dosage: 10 MG (DOSE FORM: 245)
     Route: 048
     Dates: start: 20151203
  39. RANITIDINE. [Concomitant]
     Active Substance: RANITIDINE
     Indication: PROPHYLAXIS
     Dosage: 150 MG (1 TABLET TWICE A DAY FOR 3 DAYS; DOSE FORM: 245)
     Route: 048
     Dates: start: 20151203
  40. PERTUZUMAB. [Suspect]
     Active Substance: PERTUZUMAB
     Dosage: 840 MG, TOTAL (LOADING DOSE; DOSE FORM: 230)
     Route: 042
     Dates: start: 20151105, end: 20151105
  41. PACLITAXEL. [Suspect]
     Active Substance: PACLITAXEL
     Dosage: 139 MG, EVERY 4 WEEKS (CUMULATIVE DOSE: 44.67857 MG)
     Route: 042
     Dates: start: 20151210
  42. PACLITAXEL. [Suspect]
     Active Substance: PACLITAXEL
     Dosage: 102 MG, EVERY 4 WEEKS (CUMULATIVE DOSE: 236.78572 MG)
     Route: 042
     Dates: start: 20160204, end: 20160218
  43. HERCEPTIN [Suspect]
     Active Substance: TRASTUZUMAB
     Indication: BREAST CANCER METASTATIC
     Dosage: 350 MG, EVERY 3 WEEKS (MAINTENANCE DOSE, DATE OF LAST ADMINISTERED DOSE: 27?APR?2018; DOSE FORM: 230
     Route: 042
     Dates: start: 20151203
  44. ACETYLSALICYLIC ACID [Concomitant]
     Active Substance: ASPIRIN
     Dosage: UNK
  45. ATORVASTATIN [Concomitant]
     Active Substance: ATORVASTATIN
     Dosage: 40 MG, EVERY 1 DAY (DOSE FORM: 245)(CUMULATIVE DOSE TO FIRST REACTION: 23118.334 MG)
     Route: 048
     Dates: start: 20170701
  46. LANSOPRAZOLE. [Concomitant]
     Active Substance: LANSOPRAZOLE
     Dosage: 30 MG, EVERY 1 DAY (DOSE FORM: 5)(CUMULATIVE DOSE TO FIRST REACTION: 14010.0 MG)
     Route: 048
     Dates: start: 20170312
  47. TRASTUZUMAB. [Suspect]
     Active Substance: TRASTUZUMAB
     Dosage: 450 MG 1 TOTAL (LOADING DOSE) DOSE FORM:230
     Route: 041
     Dates: start: 20151105, end: 20151105
  48. TRASTUZUMAB. [Suspect]
     Active Substance: TRASTUZUMAB
     Dosage: 350 MG, EVERY 3 WEEK (MAINTENANCE DOSE; DOSE FORM: 230; CUMULATIVE DOSE: 33.333332 MG)
     Route: 042
     Dates: start: 20151203, end: 20180427
  49. PERTUZUMAB. [Suspect]
     Active Substance: PERTUZUMAB
     Dosage: 420 MG, EVERY 3 WEEKS (MAINTENANCE DOSE) (DOSE FORM: 230)
     Route: 042
     Dates: start: 20151203
  50. PACLITAXEL. [Suspect]
     Active Substance: PACLITAXEL
     Dosage: 139 MG, EVERY 4 WEEKS (CUMULATIVE DOSE: 44.67857 MG)
     Route: 042
     Dates: start: 20151210
  51. PACLITAXEL. [Suspect]
     Active Substance: PACLITAXEL
     Dosage: 139 MG, EVERY 4 WEEKS (CUMULATIVE DOSE: 44.67857 MG)
     Route: 042
     Dates: start: 20151210
  52. PACLITAXEL. [Suspect]
     Active Substance: PACLITAXEL
     Dosage: 68 MG, EVERY 1 WEEKS (DATE OF LAST ADMINISTERED DOSE: 10?MAR?2016; CUMULATIVE DOSE: 903.4286  MG)
     Route: 042
     Dates: start: 20160303, end: 20160310
  53. PACLITAXEL. [Suspect]
     Active Substance: PACLITAXEL
     Dosage: 68 MG, EVERY 1 WEEKS (DATE OF LAST ADMINISTERED DOSE: 10?MAR?2016; CUMULATIVE DOSE: 903.4286  MG)
     Route: 042
     Dates: start: 20160303, end: 20160310
  54. PACLITAXEL. [Suspect]
     Active Substance: PACLITAXEL
     Dosage: 102 MG, EVERY 4 WEEKS (CUMULATIVE DOSE: 236.78572 MG)
     Route: 042
     Dates: start: 20160204, end: 20160218
  55. PACLITAXEL. [Suspect]
     Active Substance: PACLITAXEL
     Dosage: 138 MG, EVERY 4 WEEKS
     Route: 042
     Dates: start: 20151203, end: 20160203
  56. PACLITAXEL. [Suspect]
     Active Substance: PACLITAXEL
     Dosage: 68 MG, EVERY WEEK
     Route: 042
     Dates: start: 20160303, end: 20160310
  57. ACETYLSALICYLIC ACID [Concomitant]
     Active Substance: ASPIRIN
     Dosage: 75 MG, EVERY 1 DAY (DOSE FORM: 245)
     Route: 048
     Dates: start: 20170523, end: 20170701
  58. ATORVASTATIN [Concomitant]
     Active Substance: ATORVASTATIN
     Dosage: 40 MG, EVERY 1 DAY (DOSE FORM: 245)
     Route: 048
     Dates: start: 20170701
  59. TRASTUZUMAB. [Suspect]
     Active Substance: TRASTUZUMAB
     Dosage: 350 MG, EVERY 3 WEEK (MAINTENANCE DOSE; DOSE FORM: 230; CUMULATIVE DOSE: 33.333332 MG); DOSAGE FORM:
     Route: 042
     Dates: start: 20151203, end: 20180427
  60. PERTUZUMAB. [Suspect]
     Active Substance: PERTUZUMAB
     Indication: BREAST CANCER METASTATIC
     Dosage: 420 MG, EVERY 3 WEEKS (MAINTENANCE DOSE, DOSE FORM: 230; CUMULATIVE DOSE; 40.0 MG)
     Route: 042
     Dates: start: 20151203
  61. PERTUZUMAB. [Suspect]
     Active Substance: PERTUZUMAB
     Dosage: 840 MG, TOTAL (LOADING DOSE, INFUSION, SOLUTION; DOSE FORM: 230)
     Route: 042
     Dates: start: 20151105, end: 20151105
  62. PERTUZUMAB. [Suspect]
     Active Substance: PERTUZUMAB
     Dosage: 840 MG, TOTAL (LOADING DOSE; DOSE FORM: 230)
     Route: 042
     Dates: start: 20151105, end: 20151105
  63. PERTUZUMAB. [Suspect]
     Active Substance: PERTUZUMAB
     Dosage: 420 MG, EVERY 3 WEEKS (MAINTENANCE DOSE, LOADING DOSE, INFUSION, SOLUTION; DOSE FORM: 230; CUMULATIV
     Route: 042
     Dates: start: 20151203
  64. PACLITAXEL. [Suspect]
     Active Substance: PACLITAXEL
     Indication: BREAST CANCER METASTATIC
     Dosage: 138 MG, EVERY 4 WEEKS (CUMULATIVE DOSE: 9.857142 MG)
     Route: 042
     Dates: start: 20151203, end: 20160203
  65. PACLITAXEL. [Suspect]
     Active Substance: PACLITAXEL
     Dosage: 138 MG, EVERY 4 WEEKS (CUMULATIVE DOSE: 9.857142 MG)
     Route: 042
     Dates: start: 20151203, end: 20160203
  66. PACLITAXEL. [Suspect]
     Active Substance: PACLITAXEL
     Dosage: 68 MG, EVERY 1 WEEKS (DATE OF LAST ADMINISTERED DOSE: 10?MAR?2016; CUMULATIVE DOSE: 903.4286  MG)
     Route: 042
     Dates: start: 20160303, end: 20160310
  67. PACLITAXEL. [Suspect]
     Active Substance: PACLITAXEL
     Dosage: 102 MG, EVERY 4 WEEKS
     Route: 042
     Dates: start: 20160204, end: 20160218
  68. PACLITAXEL LIPOSOME [Suspect]
     Active Substance: PACLITAXEL
     Indication: BREAST CANCER METASTATIC
     Dosage: 134 MG, EVERY 4 WEEKS (CUMULATIVE DOSE: 229.5 MG)
     Route: 042
     Dates: start: 20151210
  69. PACLITAXEL LIPOSOME [Suspect]
     Active Substance: PACLITAXEL
     Dosage: 68 MG, EVERY 1 WEEK (DATE OF LAST ADMINISTERED DOSE: 10?MAR?2016; CUMULATIVE DOSE: 229.5 MG)
     Route: 042
     Dates: start: 20160303
  70. DEXAMETHASONE. [Concomitant]
     Active Substance: DEXAMETHASONE
     Indication: PROPHYLAXIS
     Dosage: 8 MG (DOSE FORM: 245)
     Route: 048
     Dates: start: 20151105
  71. LORATADINE. [Concomitant]
     Active Substance: LORATADINE
     Dosage: DOSE FORM: 245
     Route: 048
     Dates: start: 20151119, end: 20151217
  72. RAMIPRIL. [Concomitant]
     Active Substance: RAMIPRIL
     Dosage: 1.25 MG, EVERY 0.5 DAY
     Route: 048
     Dates: start: 20170523
  73. ROSUVASTATIN. [Concomitant]
     Active Substance: ROSUVASTATIN
     Dosage: 5 MG (DOSE FORM:245)
     Route: 048
     Dates: start: 201806, end: 201911
  74. TRIMETHOPRIM. [Concomitant]
     Active Substance: TRIMETHOPRIM
     Dosage: 200 MG EVERY 0.5 DAY
     Route: 048
     Dates: start: 20151210
  75. PERTUZUMAB. [Suspect]
     Active Substance: PERTUZUMAB
     Dosage: 420 MG, EVERY 3 WEEKS (MAINTENANCE DOSE, LOADING DOSE, INFUSION, SOLUTION; DOSE FORM: 293; CUMULATIV
     Route: 042
     Dates: start: 20151203
  76. PACLITAXEL. [Suspect]
     Active Substance: PACLITAXEL
     Dosage: 102 MG, EVERY 4 WEEKS (CUMULATIVE DOSE: 236.78572 MG)
     Route: 042
     Dates: start: 20160204, end: 20160218
  77. PACLITAXEL. [Suspect]
     Active Substance: PACLITAXEL
     Dosage: 102 MG, EVERY 4 WEEKS (CUMULATIVE DOSE: 236.78572 MG)
     Route: 042
     Dates: start: 20160204, end: 20160218
  78. CETIRIZINE [Concomitant]
     Active Substance: CETIRIZINE HYDROCHLORIDE
     Indication: PROPHYLAXIS
     Dosage: 10 MG (1 TABLET AT NIGHT FOR 3 DAYS; DOSE FORM: 245)
     Route: 048
     Dates: start: 20151203
  79. ROSUVASTATIN CALCIUM. [Concomitant]
     Active Substance: ROSUVASTATIN CALCIUM
     Dosage: UNK
  80. TRAMADOL HYDROCHLORIDE. [Concomitant]
     Active Substance: TRAMADOL HYDROCHLORIDE
     Indication: PROPHYLAXIS
     Dosage: 50 MG (DOSE FORM: 5)
     Route: 048
     Dates: start: 20151105
  81. TRAMADOL. [Concomitant]
     Active Substance: TRAMADOL
     Indication: PROPHYLAXIS
     Dosage: 50 MG (DOSE FORM: 5)
     Route: 048
     Dates: start: 20151105

REACTIONS (20)
  - Malaise [Recovered/Resolved]
  - Cystitis noninfective [Recovered/Resolved]
  - Escherichia test positive [Not Recovered/Not Resolved]
  - Urinary tract infection [Recovered/Resolved]
  - Palmar erythema [Recovered/Resolved]
  - Fatigue [Recovered/Resolved]
  - Hypertension [Recovered/Resolved]
  - Anaphylactic reaction [Recovered/Resolved]
  - Neuropathy peripheral [Recovered/Resolved]
  - Tendonitis [Not Recovered/Not Resolved]
  - Diarrhoea [Recovered/Resolved]
  - Rash [Recovered/Resolved]
  - Bacterial test positive [Recovered/Resolved]
  - Urosepsis [Recovered/Resolved]
  - Dyspnoea [Recovered/Resolved]
  - Erythema [Recovered/Resolved]
  - Mucosal inflammation [Recovered/Resolved]
  - Tremor [Recovered/Resolved]
  - Neuropathy peripheral [Recovered/Resolved]
  - Defaecation urgency [Recovered/Resolved]

NARRATIVE: CASE EVENT DATE: 201512
